FAERS Safety Report 6671657-X (Version None)
Quarter: 2010Q2

REPORT INFORMATION
  Report Type: 
  Country: None (occurrence: None)
  Receive Date: 20100407
  Receipt Date: 20100328
  Transmission Date: 20101027
  Serious: Yes (Other)
  Sender: FDA-Public Use
  Company Number: US-BAXTER-2010BH008417

PATIENT
  Age: 9 Year
  Sex: Female

DRUGS (10)
  1. MIDAZOLAM HYDROCHLORIDE [Suspect]
     Indication: STATUS EPILEPTICUS
     Route: 042
  2. DOPAMINE HCL [Concomitant]
     Indication: HYPOTENSION
     Route: 065
  3. OXCARBAZEPINE [Concomitant]
     Indication: EPILEPSY
     Route: 065
  4. VALPROIC ACID [Concomitant]
     Indication: EPILEPSY
     Route: 065
  5. PHENYTOIN [Concomitant]
     Indication: EPILEPSY
     Route: 065
  6. LEVETIRACETAM [Concomitant]
     Indication: EPILEPSY
     Route: 065
  7. LAMOTRIGINE [Concomitant]
     Indication: EPILEPSY
     Route: 065
  8. TOPIRAMATE [Concomitant]
     Indication: EPILEPSY
     Route: 065
  9. PHENOBARBITAL TAB [Concomitant]
     Indication: EPILEPSY
     Route: 065
  10. PREGABALIN [Concomitant]
     Indication: EPILEPSY
     Route: 065

REACTIONS (1)
  - METABOLIC ACIDOSIS [None]
